FAERS Safety Report 25205147 (Version 3)
Quarter: 2025Q2

REPORT INFORMATION
  Report Type: Report from Study
  Country: US (occurrence: US)
  Receive Date: 20250417
  Receipt Date: 20250507
  Transmission Date: 20250717
  Serious: Yes (Other)
  Sender: ABBVIE
  Company Number: US-ABBVIE-6225574

PATIENT
  Age: 33 Year
  Sex: Male
  Weight: 96 kg

DRUGS (2)
  1. SKYRIZI [Suspect]
     Active Substance: RISANKIZUMAB-RZAA
     Indication: Psoriasis
     Route: 058
     Dates: start: 20221201
  2. SKYRIZI [Suspect]
     Active Substance: RISANKIZUMAB-RZAA
     Indication: Psoriatic arthropathy

REACTIONS (6)
  - Fungal infection [Recovered/Resolved]
  - Paranasal sinus mass [Recovered/Resolved]
  - Psoriatic arthropathy [Recovering/Resolving]
  - Sinusitis [Recovered/Resolved]
  - Migraine [Recovered/Resolved]
  - Brain compression [Recovered/Resolved]

NARRATIVE: CASE EVENT DATE: 20241001
